FAERS Safety Report 18968181 (Version 2)
Quarter: 2022Q1

REPORT INFORMATION
  Report Type: Spontaneous
  Country: US (occurrence: US)
  Receive Date: 20210304
  Receipt Date: 20220321
  Transmission Date: 20220423
  Serious: Yes (Other)
  Sender: FDA-Public Use
  Company Number: US-MALLINCKRODT-C199501261

PATIENT

DRUGS (1)
  1. TECHNESCAN HDP [Suspect]
     Active Substance: TECHNETIUM TC-99M OXIDRONATE
     Indication: Bone scan
     Route: 051

REACTIONS (2)
  - Injection site cellulitis [Recovered/Resolved]
  - Injection site thrombosis [Recovered/Resolved]

NARRATIVE: CASE EVENT DATE: 19951203
